FAERS Safety Report 20247394 (Version 1)
Quarter: 2021Q4

REPORT INFORMATION
  Report Type: Spontaneous
  Country: ES (occurrence: ES)
  Receive Date: 20211229
  Receipt Date: 20211229
  Transmission Date: 20220303
  Serious: Yes (Other)
  Sender: FDA-Public Use
  Company Number: ES-OTSUKA-US-2015-11595

PATIENT
  Age: 23 Year
  Sex: Male

DRUGS (3)
  1. ARIPIPRAZOLE [Suspect]
     Active Substance: ARIPIPRAZOLE
     Indication: Delusional disorder, unspecified type
     Dosage: 30 MILLIGRAM, QD (15 MG, BID)
     Route: 065
  2. ABILIFY MAINTENA [Suspect]
     Active Substance: ARIPIPRAZOLE
     Indication: Delusional disorder, unspecified type
     Dosage: UNK
     Route: 030
  3. LORAZEPAM [Concomitant]
     Active Substance: LORAZEPAM
     Indication: Delusional disorder, unspecified type
     Dosage: 2 MG MILLIGRAM(S), 1/2-1/2-0-1 (BID)
     Route: 065

REACTIONS (7)
  - Thinking abnormal [Not Recovered/Not Resolved]
  - Delusion [Not Recovered/Not Resolved]
  - Mental impairment [Not Recovered/Not Resolved]
  - Psychotic disorder [Not Recovered/Not Resolved]
  - Product use in unapproved indication [Unknown]
  - Off label use [Unknown]
  - No adverse event [Unknown]
